FAERS Safety Report 20894017 (Version 1)
Quarter: 2022Q2

REPORT INFORMATION
  Report Type: Spontaneous
  Country: US (occurrence: None)
  Receive Date: 20220528
  Receipt Date: 20220528
  Transmission Date: 20220721
  Serious: Yes (Other)
  Sender: FDA-Public Use
  Company Number: None

PATIENT
  Age: 49 Year
  Sex: Male

DRUGS (1)
  1. BEBTELOVIMAB [Suspect]
     Active Substance: BEBTELOVIMAB
     Indication: COVID-19
     Route: 042
     Dates: start: 20220527, end: 20220527

REACTIONS (4)
  - Tachycardia [None]
  - Flushing [None]
  - Scrotal swelling [None]
  - Pruritus [None]

NARRATIVE: CASE EVENT DATE: 20220527
